FAERS Safety Report 9587501 (Version 2)
Quarter: 2013Q4

REPORT INFORMATION
  Report Type: Report from Study
  Country: US (occurrence: US)
  Receive Date: 20131003
  Receipt Date: 20131003
  Transmission Date: 20140711
  Serious: Yes (Hospitalization, Other)
  Sender: FDA-Public Use
  Company Number: PHHO2009US01811

PATIENT
  Sex: Male
  Weight: 101.5 kg

DRUGS (5)
  1. PTK 787A [Suspect]
     Indication: RENAL CELL CARCINOMA
     Dosage: 750 MG, BID
     Route: 048
     Dates: start: 20081222
  2. RAD001C [Suspect]
     Indication: RENAL CELL CARCINOMA
     Dosage: 10 MG, UNK
     Route: 048
     Dates: start: 20081222
  3. MAXZIDE [Concomitant]
  4. ATENOLOL [Concomitant]
  5. LISINOPRIL [Concomitant]

REACTIONS (10)
  - Renal failure acute [Recovering/Resolving]
  - Vomiting [Recovering/Resolving]
  - Anaemia [Unknown]
  - Diarrhoea [Recovered/Resolved]
  - Hypertension [Recovering/Resolving]
  - Chest pain [Unknown]
  - Dehydration [Recovering/Resolving]
  - Urine output decreased [Recovering/Resolving]
  - Blood creatinine increased [Recovering/Resolving]
  - Asthenia [Recovering/Resolving]
